FAERS Safety Report 8549527-1 (Version None)
Quarter: 2012Q3

REPORT INFORMATION
  Report Type: 
  Country: None (occurrence: None)
  Receive Date: 20120730
  Receipt Date: 20120723
  Transmission Date: 20120928
  Serious: Yes (Hospitalization, Other)
  Sender: FDA-Public Use
  Company Number: US-PFIZER INC-2012166567

PATIENT
  Sex: Male

DRUGS (17)
  1. KLOR-CON [Concomitant]
     Dosage: UNK
  2. COLACE [Concomitant]
     Dosage: UNK
  3. CATAPRES [Concomitant]
     Dosage: UNK
  4. LYRICA [Suspect]
     Indication: RHEUMATOID ARTHRITIS
  5. NORVASC [Suspect]
     Dosage: UNK
  6. XANAX [Suspect]
     Dosage: UNK
  7. TOPROL-XL [Concomitant]
     Dosage: UNK
  8. TOPROL-XL [Concomitant]
     Dosage: UNK
  9. NITROSTAT [Concomitant]
     Dosage: UNK
  10. LYRICA [Suspect]
     Indication: FIBROMYALGIA
     Dosage: 100 MG, ONCE DAILY
  11. ASPIRIN [Concomitant]
     Dosage: UNK
  12. PLAVIX [Concomitant]
     Dosage: UNK
  13. NEXIUM [Concomitant]
     Dosage: UNK
  14. TRICOR [Concomitant]
     Dosage: UNK
  15. POTASSIUM [Concomitant]
     Dosage: UNK
  16. CLONIDINE [Concomitant]
     Dosage: UNK
  17. CRESTOR [Concomitant]
     Dosage: UNK

REACTIONS (6)
  - MUSCLE SPASMS [None]
  - DIZZINESS [None]
  - TREMOR [None]
  - HYPOAESTHESIA [None]
  - WITHDRAWAL SYNDROME [None]
  - HYPERTENSION [None]
